FAERS Safety Report 4831779-2 (Version None)
Quarter: 2005Q4

REPORT INFORMATION
  Report Type: 
  Country: None (occurrence: None)
  Receive Date: 20051118
  Receipt Date: 20051104
  Transmission Date: 20060501
  Serious: Yes (Hospitalization)
  Sender: FDA-Public Use
  Company Number: DE-AMGEN-UK156865

PATIENT
  Age: 52 Year
  Sex: Female

DRUGS (10)
  1. KINERET [Suspect]
     Indication: RHEUMATOID ARTHRITIS
     Route: 058
     Dates: start: 20050301
  2. INFLIXIMAB [Suspect]
     Route: 065
     Dates: start: 20040801, end: 20050101
  3. PREDNISOLONE [Concomitant]
     Route: 065
  4. METHOTREXATE [Concomitant]
     Route: 065
     Dates: start: 20040801
  5. FOLIC ACID [Concomitant]
     Route: 065
  6. FOSAMAX [Concomitant]
     Route: 065
  7. PANTOZOL [Concomitant]
     Route: 065
  8. CALCIUM GLUCONATE [Concomitant]
     Route: 065
  9. VIGANTOLETTEN [Concomitant]
     Route: 065
  10. LEVOCETIRIZINE [Concomitant]
     Route: 065

REACTIONS (5)
  - DERMATITIS ALLERGIC [None]
  - ERYTHEMA [None]
  - INJECTION SITE OEDEMA [None]
  - INJECTION SITE REACTION [None]
  - PRURITUS [None]
